FAERS Safety Report 11095032 (Version 2)
Quarter: 2015Q2

REPORT INFORMATION
  Report Type: Report from Study
  Country: US (occurrence: US)
  Receive Date: 20150506
  Receipt Date: 20150519
  Transmission Date: 20150821
  Serious: Yes (Death)
  Sender: FDA-Public Use
  Company Number: US-CELGENE-USA-2015050432

PATIENT
  Age: 59 Year
  Sex: Female
  Weight: 57.66 kg

DRUGS (6)
  1. REVLIMID [Suspect]
     Active Substance: LENALIDOMIDE
     Indication: PLASMA CELL MYELOMA
     Route: 048
     Dates: start: 20141003, end: 20150413
  2. CYTOXAN [Concomitant]
     Active Substance: CYCLOPHOSPHAMIDE
     Indication: PERIPHERAL BLOOD STEM CELL APHERESIS
     Dosage: 1.4 MILLIGRAM
     Route: 041
     Dates: start: 20141219, end: 20141219
  3. MESNA. [Concomitant]
     Active Substance: MESNA
     Indication: PERIPHERAL BLOOD STEM CELL APHERESIS
     Route: 041
     Dates: start: 20141219, end: 20141219
  4. REVLIMID [Suspect]
     Active Substance: LENALIDOMIDE
     Route: 048
     Dates: start: 20150429, end: 20150429
  5. DEXAMETHASONE. [Suspect]
     Active Substance: DEXAMETHASONE
     Indication: PLASMA CELL MYELOMA
     Route: 065
  6. VELCADE [Suspect]
     Active Substance: BORTEZOMIB
     Indication: PLASMA CELL MYELOMA
     Route: 041
     Dates: start: 20141003, end: 20150413

REACTIONS (3)
  - Headache [Unknown]
  - Plasma cell leukaemia [Fatal]
  - Epistaxis [Unknown]

NARRATIVE: CASE EVENT DATE: 20150428
